FAERS Safety Report 5104296-2 (Version None)
Quarter: 2006Q3

REPORT INFORMATION
  Report Type: 
  Country: None (occurrence: None)
  Receive Date: 20060912
  Receipt Date: 20060912
  Transmission Date: 20061208
  Serious: Yes (Hospitalization)
  Sender: FDA-Public Use
  Company Number: None

PATIENT
  Sex: Male

DRUGS (5)
  1. WARFARIN SODIUM [Suspect]
     Indication: DEEP VEIN THROMBOSIS
     Dosage: 5 MG   DAILY   PO
     Route: 048
     Dates: start: 20060310, end: 20060614
  2. LISINOPRIL [Concomitant]
  3. MULTI-VITAMIN [Concomitant]
  4. POTASSIUM CHLORIDE [Concomitant]
  5. OXYCODONE HCL [Concomitant]

REACTIONS (1)
  - RECTAL HAEMORRHAGE [None]
